FAERS Safety Report 7660330-7 (Version None)
Quarter: 2011Q3

REPORT INFORMATION
  Report Type: 
  Country: None (occurrence: None)
  Receive Date: 20110805
  Receipt Date: 20110727
  Transmission Date: 20111222
  Serious: Yes (Hospitalization)
  Sender: FDA-Public Use
  Company Number: US-ELI_LILLY_AND_COMPANY-US200908006000

PATIENT
  Sex: Male
  Weight: 340 kg

DRUGS (22)
  1. BYETTA [Suspect]
     Dosage: 10 UG, 2/D
     Dates: start: 20051201
  2. METOLAZONE [Concomitant]
     Indication: HYPERTENSION
     Dosage: 5 MG, QOD
     Dates: start: 20060801, end: 20090201
  3. OXYCONTIN [Concomitant]
     Dosage: 100 MG, OTHER
  4. LANTUS [Concomitant]
  5. BYETTA [Suspect]
     Dosage: 5 UG, 2/D
     Dates: start: 20060107, end: 20071101
  6. ACTOS [Concomitant]
     Indication: DIABETES MELLITUS
     Dosage: 45 MG, DAILY (1/D)
     Dates: start: 20060201, end: 20070201
  7. DIAZEPAM [Concomitant]
     Indication: ANXIETY
     Dates: start: 20061101, end: 20061201
  8. FISH OIL [Concomitant]
  9. CALCIUM ACETATE [Concomitant]
     Dosage: 600 MG, UNK
  10. ENBREL [Concomitant]
     Dosage: 50 MG, WEEKLY (1/W)
  11. ALLOPURINOL [Concomitant]
     Dosage: 200 MG, UNK
  12. ANDROGEL [Concomitant]
     Indication: HORMONE REPLACEMENT THERAPY
     Dosage: UNK, DAILY (1/D)
  13. DEMADEX [Concomitant]
  14. VITAMIN B [Concomitant]
     Dosage: 50 MG, DAILY (1/D)
  15. LISINOPRIL [Concomitant]
     Dosage: 5 MG, 2/D
  16. AMARYL [Concomitant]
     Indication: DIABETES MELLITUS
     Dosage: 4 MG, DAILY (1/D)
  17. FOSAMAX [Concomitant]
     Dosage: UNK, WEEKLY (1/W)
  18. VITAMIN D [Concomitant]
     Dosage: 400 IU, DAILY (1/D)
  19. ASPIRIN [Concomitant]
     Dosage: 81 MG, DAILY (1/D)
  20. ZOCOR [Concomitant]
     Indication: BLOOD CHOLESTEROL INCREASED
     Dosage: 20 MG, DAILY (1/D)
     Dates: start: 20060201, end: 20060801
  21. OXYCONTIN [Concomitant]
     Dosage: 80 MG, EACH EVENING
  22. ALLEGRA [Concomitant]
     Dosage: 180 MG, DAILY (1/D)

REACTIONS (2)
  - OFF LABEL USE [None]
  - PANCREATITIS ACUTE [None]
